FAERS Safety Report 4878687-9 (Version None)
Quarter: 2006Q1

REPORT INFORMATION
  Report Type: 
  Country: None (occurrence: None)
  Receive Date: 20060112
  Receipt Date: 20060101
  Transmission Date: 20060701
  Serious: Yes (Life-Threatening)
  Sender: FDA-Public Use
  Company Number: BR-JNJFOC-20060100819

PATIENT
  Age: 26 Year
  Sex: Male

DRUGS (3)
  1. PANTELMIN [Suspect]
     Indication: DRUG USE FOR UNKNOWN INDICATION
  2. CIMETIDINE [Suspect]
     Indication: DRUG USE FOR UNKNOWN INDICATION
  3. METOCLOPRAMID [Suspect]
     Indication: DRUG USE FOR UNKNOWN INDICATION

REACTIONS (3)
  - HYPOAESTHESIA [None]
  - MULTIPLE DRUG OVERDOSE INTENTIONAL [None]
  - SUICIDE ATTEMPT [None]
